FAERS Safety Report 5575423-8 (Version None)
Quarter: 2007Q4

REPORT INFORMATION
  Report Type: 
  Country: None (occurrence: None)
  Receive Date: 20071227
  Receipt Date: 20071203
  Transmission Date: 20080405
  Serious: No
  Sender: FDA-Public Use
  Company Number: US-BOEHRINGER INGELHEIM PHARMACEUTICALS, INC.-2007-BP-25578BP

PATIENT
  Sex: Female

DRUGS (2)
  1. ZANTAC 150 [Suspect]
     Indication: GASTROOESOPHAGEAL REFLUX DISEASE
     Route: 048
  2. MYSOLINE [Concomitant]
     Indication: CONVULSION

REACTIONS (3)
  - ABDOMINAL DISTENSION [None]
  - DYSGEUSIA [None]
  - PHARYNGEAL OEDEMA [None]
